FAERS Safety Report 8120786-2 (Version None)
Quarter: 2012Q1

REPORT INFORMATION
  Report Type: 
  Country: None (occurrence: None)
  Receive Date: 20120207
  Receipt Date: 20120131
  Transmission Date: 20120608
  Serious: Yes (Other)
  Sender: FDA-Public Use
  Company Number: US-ASTRAZENECA-2011SE59452

PATIENT
  Age: 30125 Day
  Sex: Female

DRUGS (2)
  1. BRILINTA [Suspect]
     Indication: CARDIOVASCULAR EVENT PROPHYLAXIS
     Route: 048
  2. BRILINTA [Suspect]
     Route: 048
     Dates: start: 20110926, end: 20111004

REACTIONS (4)
  - ANXIETY [None]
  - DYSPEPSIA [None]
  - ANGER [None]
  - FEELING COLD [None]
